FAERS Safety Report 6429733-2 (Version None)
Quarter: 2009Q4

REPORT INFORMATION
  Report Type: 
  Country: None (occurrence: None)
  Receive Date: 20091103
  Receipt Date: 20091019
  Transmission Date: 20100525
  Serious: No
  Sender: FDA-Public Use
  Company Number: 02100-JPN-06-0665

PATIENT
  Age: 60 Year
  Sex: Male
  Weight: 65 kg

DRUGS (5)
  1. PLETAL [Suspect]
     Indication: CEREBRAL INFARCTION
     Dosage: 81 MG, QD ORAL
     Route: 048
     Dates: start: 20060916, end: 20061020
  2. AMARYL [Concomitant]
  3. BASEN OD (VOGLIBOSE) [Concomitant]
  4. CANDESARTAN CILEXETIL [Concomitant]
  5. CRESTOR [Concomitant]

REACTIONS (2)
  - ANAEMIA [None]
  - GASTRODUODENAL ULCER [None]
